FAERS Safety Report 8901419 (Version 1)
Quarter: 2012Q4

REPORT INFORMATION
  Report Type: Report from Study
  Country: CA (occurrence: CA)
  Receive Date: 20121109
  Receipt Date: 20121109
  Transmission Date: 20130627
  Serious: Yes (Hospitalization)
  Sender: FDA-Public Use
  Company Number: CA-JNJFOC-20121017568

PATIENT
  Sex: Male
  Weight: 41.6 kg

DRUGS (3)
  1. REMICADE [Suspect]
     Indication: CROHN^S DISEASE
     Route: 042
     Dates: start: 2010
  2. IMURAN [Concomitant]
     Route: 048
  3. DILAUDID [Concomitant]
     Route: 065

REACTIONS (2)
  - Lactic acidosis [Recovered/Resolved]
  - Dysarthria [Recovered/Resolved]
